FAERS Safety Report 9936220 (Version 1)
Quarter: 2014Q1

REPORT INFORMATION
  Report Type: Spontaneous
  Country: US (occurrence: US)
  Receive Date: 20140228
  Receipt Date: 20140228
  Transmission Date: 20141002
  Serious: No
  Sender: FDA-Public Use
  Company Number: US-AMGEN-USASP2013091229

PATIENT
  Age: 53 Year
  Sex: Female
  Weight: 90 kg

DRUGS (4)
  1. ENBREL [Suspect]
     Indication: PRODUCT USED FOR UNKNOWN INDICATION
     Dosage: 50 MG, 2 TIMES/WK
     Route: 058
  2. DIVIGEL [Concomitant]
     Dosage: 2.5 MG, UNK
  3. PROPRANOLOL [Concomitant]
     Dosage: 1MG/ML
     Route: 048
  4. MELOXICAM [Concomitant]
     Dosage: UNK
     Route: 048

REACTIONS (2)
  - Injection site swelling [Unknown]
  - Injection site erythema [Unknown]
